FAERS Safety Report 24879074 (Version 1)
Quarter: 2025Q1

REPORT INFORMATION
  Report Type: Spontaneous
  Country: US (occurrence: US)
  Receive Date: 20250123
  Receipt Date: 20250123
  Transmission Date: 20250409
  Serious: Yes (Other)
  Sender: AMGEN
  Company Number: US-AMGEN-USASP2025009611

PATIENT
  Sex: Male

DRUGS (8)
  1. NEULASTA [Suspect]
     Active Substance: PEGFILGRASTIM
     Indication: Product used for unknown indication
     Route: 065
  2. XGEVA [Suspect]
     Active Substance: DENOSUMAB
     Indication: Product used for unknown indication
     Route: 065
  3. PLUVICTO [Suspect]
     Active Substance: LUTETIUM LU-177 VIPIVOTIDE TETRAXETAN
     Indication: Prostate cancer
     Route: 065
  4. JEVTANA [Concomitant]
     Active Substance: CABAZITAXEL
     Indication: Prostate cancer
  5. CARBOPLATIN [Concomitant]
     Active Substance: CARBOPLATIN
     Indication: Prostate cancer
  6. DOCETAXEL [Concomitant]
     Active Substance: DOCETAXEL
  7. BICALUTAMIDE [Concomitant]
     Active Substance: BICALUTAMIDE
     Indication: Prostate cancer
  8. ABIRATERONE [Concomitant]
     Active Substance: ABIRATERONE
     Indication: Prostate cancer

REACTIONS (12)
  - Prostate cancer metastatic [Unknown]
  - Renal failure [Unknown]
  - Neuropathy peripheral [Unknown]
  - Spinal fracture [Unknown]
  - Bone marrow failure [Recovered/Resolved]
  - Anaemia [Unknown]
  - Fatigue [Unknown]
  - Dry mouth [Unknown]
  - Diarrhoea [Unknown]
  - Taste disorder [Recovering/Resolving]
  - Unevaluable event [Unknown]
  - Tongue disorder [Recovering/Resolving]
